FAERS Safety Report 11796652 (Version 2)
Quarter: 2015Q4

REPORT INFORMATION
  Report Type: Spontaneous
  Country: US (occurrence: US)
  Receive Date: 20151203
  Receipt Date: 20151211
  Transmission Date: 20160305
  Serious: Yes (Other)
  Sender: FDA-Public Use
  Company Number: US-GLAXOSMITHKLINE-US2015GSK171455

PATIENT
  Sex: Female

DRUGS (2)
  1. LAMICTAL [Suspect]
     Active Substance: LAMOTRIGINE
     Indication: DEPRESSION
     Dosage: 200 MG, UNK
  2. LAMICTAL [Suspect]
     Active Substance: LAMOTRIGINE
     Indication: NEUROPATHY PERIPHERAL
     Dosage: 200 MG, UNK

REACTIONS (6)
  - Off label use [Unknown]
  - Therapeutic response unexpected [Unknown]
  - Breast cancer [Recovering/Resolving]
  - Intentional product use issue [Unknown]
  - Underdose [Unknown]
  - Pain in extremity [Unknown]
